FAERS Safety Report 9805637 (Version 1)
Quarter: 2014Q1

REPORT INFORMATION
  Report Type: Spontaneous
  Country: IL (occurrence: IL)
  Receive Date: 20140109
  Receipt Date: 20140109
  Transmission Date: 20141002
  Serious: Yes (Hospitalization)
  Sender: FDA-Public Use
  Company Number: IL-SA-2014SA002150

PATIENT
  Age: 50 Year
  Sex: Male

DRUGS (1)
  1. TELFAST [Suspect]
     Indication: HYPERSENSITIVITY
     Route: 065

REACTIONS (2)
  - Dry mouth [Unknown]
  - Dyspnoea [Unknown]
